FAERS Safety Report 7548328-0 (Version None)
Quarter: 2011Q2

REPORT INFORMATION
  Report Type: 
  Country: None (occurrence: None)
  Receive Date: 20110615
  Receipt Date: 20110608
  Transmission Date: 20111010
  Serious: No
  Sender: FDA-Public Use
  Company Number: US-PFIZER INC-2011107720

PATIENT

DRUGS (3)
  1. PREMARIN [Suspect]
  2. PREMARIN [Suspect]
  3. PREMARIN [Suspect]

REACTIONS (1)
  - DRUG INEFFECTIVE [None]
